FAERS Safety Report 20957181 (Version 1)
Quarter: 2022Q2

REPORT INFORMATION
  Report Type: Report from Study
  Country: US (occurrence: US)
  Receive Date: 20220614
  Receipt Date: 20220614
  Transmission Date: 20220721
  Serious: Yes (Death)
  Sender: FDA-Public Use
  Company Number: US-HLS-202200480

PATIENT
  Sex: Female

DRUGS (1)
  1. CLOZAPINE [Suspect]
     Active Substance: CLOZAPINE
     Indication: Dementia
     Dosage: AT BEDTIME
     Route: 065
     Dates: start: 2009

REACTIONS (2)
  - Neoplasm malignant [Fatal]
  - Off label use [Unknown]
